FAERS Safety Report 4395477-4 (Version None)
Quarter: 2004Q3

REPORT INFORMATION
  Report Type: 
  Country: None (occurrence: None)
  Receive Date: 20040707
  Receipt Date: 20040625
  Transmission Date: 20050211
  Serious: Yes (Hospitalization)
  Sender: FDA-Public Use
  Company Number: 04P-087-0263609-00

PATIENT
  Age: 52 Year
  Sex: Female
  Weight: 45 kg

DRUGS (4)
  1. BIAXIN [Suspect]
     Indication: PHARYNGITIS
     Dosage: 200 MG, 2 IN 1 D, PER ORAL
     Route: 048
     Dates: start: 20040423, end: 20040429
  2. CEFCAPENE PIVOXIL HYDROCHLORIDE [Suspect]
     Indication: PHARYNGITIS
     Dosage: 100 MG, 3 IN 1 D, PER ORAL
     Route: 048
     Dates: start: 20040430, end: 20040502
  3. PL [Concomitant]
  4. L-CARBOCISTEINE [Concomitant]

REACTIONS (2)
  - DRUG ERUPTION [None]
  - PYREXIA [None]
